FAERS Safety Report 19894381 (Version 1)
Quarter: 2021Q3

REPORT INFORMATION
  Report Type: Spontaneous
  Country: DE (occurrence: DE)
  Receive Date: 20210929
  Receipt Date: 20210929
  Transmission Date: 20211014
  Serious: Yes (Other)
  Sender: FDA-Public Use
  Company Number: DE-009507513-2109DEU006472

PATIENT
  Sex: Male

DRUGS (1)
  1. JANUMET [Suspect]
     Active Substance: METFORMIN HYDROCHLORIDE\SITAGLIPTIN PHOSPHATE
     Dosage: UNK
     Route: 048

REACTIONS (5)
  - Chemotherapy [Unknown]
  - Wrong technique in product usage process [Unknown]
  - Radiotherapy [Unknown]
  - Circumstance or information capable of leading to medication error [Unknown]
  - Dysphagia [Unknown]
